FAERS Safety Report 9989144 (Version 3)
Quarter: 2014Q2

REPORT INFORMATION
  Report Type: Spontaneous
  Country: US (occurrence: None)
  Receive Date: 20131022
  Receipt Date: 20140515
  Transmission Date: 20141212
  Serious: Yes (Hospitalization, Other)
  Sender: FDA-Public Use
  Company Number: ADR-2013-01346

PATIENT
  Age: 60 Year
  Sex: Male

DRUGS (12)
  1. LIORESAL INTRATHECAL [Suspect]
     Indication: MUSCLE SPASTICITY
  2. UNSPECIFIED PAIN MEDICATIONS [Suspect]
  3. CYMBALTA [Concomitant]
  4. DILANTIN [Concomitant]
  5. FLOMAX [Concomitant]
  6. LEVETIRACETAM [Concomitant]
  7. LOPRESSOR [Concomitant]
  8. LOVASTATIN [Concomitant]
  9. OXYCODONE [Concomitant]
  10. PERCOCET [Concomitant]
  11. HYDROCODONE [Concomitant]
  12. ALPRAZOLAM [Concomitant]

REACTIONS (17)
  - Underdose [None]
  - Spinal disorder [None]
  - Headache [None]
  - Pain [None]
  - Muscle spasticity [None]
  - Tinnitus [None]
  - Rhinorrhoea [None]
  - Sexual dysfunction [None]
  - Dysuria [None]
  - Dizziness [None]
  - Back pain [None]
  - Musculoskeletal pain [None]
  - Humerus fracture [None]
  - Pain in extremity [None]
  - Myalgia [None]
  - Hemiplegia [None]
  - Cerebral ischaemia [None]
